FAERS Safety Report 5386139-5 (Version None)
Quarter: 2007Q3

REPORT INFORMATION
  Report Type: 
  Country: None (occurrence: None)
  Receive Date: 20070713
  Receipt Date: 20070629
  Transmission Date: 20080115
  Serious: Yes (Other)
  Sender: FDA-Public Use
  Company Number: PHEH2007US09499

PATIENT
  Age: 76 Year
  Sex: Female

DRUGS (6)
  1. MIACALCIN [Suspect]
     Dosage: 1 SPRAY, QD
     Route: 045
  2. CALCIUM CHLORIDE [Concomitant]
  3. VITAMIN D [Concomitant]
  4. NIACIN [Concomitant]
  5. FOLIC ACID [Concomitant]
  6. MULTI-VITAMINS [Concomitant]

REACTIONS (5)
  - LIMB DISCOMFORT [None]
  - LOWER LIMB FRACTURE [None]
  - MUSCULOSKELETAL DISCOMFORT [None]
  - SPINAL FRACTURE [None]
  - UPPER LIMB FRACTURE [None]
